FAERS Safety Report 8818879 (Version 1)
Quarter: 2012Q4

REPORT INFORMATION
  Report Type: 
  Country: ES (occurrence: ES)
  Receive Date: 20121001
  Receipt Date: 20121001
  Transmission Date: 20130627
  Serious: Yes (Life-Threatening, Hospitalization)
  Sender: FDA-Public Use
  Company Number: ES-JNJFOC-20120910743

PATIENT
  Age: 46 Year
  Sex: Male

DRUGS (3)
  1. PALIPERIDONE PALMITATE [Suspect]
     Indication: SCHIZOPHRENIA, PARANOID TYPE
     Route: 030
     Dates: start: 20120406, end: 20120804
  2. OMEPRAZOLE [Concomitant]
     Indication: PROPHYLAXIS
     Route: 048
  3. METHADONE [Concomitant]
     Indication: DRUG DEPENDENCE
     Route: 048
     Dates: start: 2000

REACTIONS (2)
  - Pulmonary embolism [Recovered/Resolved]
  - Deep vein thrombosis [Recovered/Resolved]
